FAERS Safety Report 12141621 (Version 1)
Quarter: 2016Q1

REPORT INFORMATION
  Report Type: Spontaneous
  Country: US (occurrence: US)
  Receive Date: 20160303
  Receipt Date: 20160303
  Transmission Date: 20160526
  Serious: Yes (Life-Threatening)
  Sender: FDA-Public Use
  Company Number: US-ABBVIE-15P-163-1500360-00

PATIENT
  Sex: Male

DRUGS (1)
  1. ANDROGEL [Suspect]
     Active Substance: TESTOSTERONE
     Indication: ANDROGEN REPLACEMENT THERAPY
     Route: 061
     Dates: start: 201009, end: 201112

REACTIONS (3)
  - Cerebrovascular accident [Unknown]
  - Ischaemic stroke [Unknown]
  - Pain [Unknown]

NARRATIVE: CASE EVENT DATE: 201111
